FAERS Safety Report 14672072 (Version 2)
Quarter: 2018Q1

REPORT INFORMATION
  Report Type: Spontaneous
  Country: US (occurrence: US)
  Receive Date: 20180323
  Receipt Date: 20180328
  Transmission Date: 20180509
  Serious: No
  Sender: FDA-Public Use
  Company Number: US-009507513-1803USA002698

PATIENT
  Age: 30 Year
  Sex: Female
  Weight: 64.4 kg

DRUGS (1)
  1. NEXPLANON [Suspect]
     Active Substance: ETONOGESTREL
     Indication: CONTRACEPTION
     Dosage: 1 IMPLANT, 3 YEAR IMPLANT, IN LEFT ARM
     Route: 059
     Dates: start: 20180217

REACTIONS (3)
  - Pain in extremity [Unknown]
  - Medical device site movement impairment [Unknown]
  - Implant site pain [Unknown]

NARRATIVE: CASE EVENT DATE: 20180306
